FAERS Safety Report 20834543 (Version 2)
Quarter: 2022Q2

REPORT INFORMATION
  Report Type: Spontaneous
  Country: DE (occurrence: DE)
  Receive Date: 20220516
  Receipt Date: 20220527
  Transmission Date: 20220720
  Serious: Yes (Other)
  Sender: FDA-Public Use
  Company Number: DE-NOVARTISPH-NVSC2022DE106509

PATIENT
  Age: 62 Year
  Sex: Male
  Weight: 70 kg

DRUGS (2)
  1. OXALIPLATIN [Suspect]
     Active Substance: OXALIPLATIN
     Indication: Neoplasm malignant
     Dosage: 242 MG
     Route: 042
     Dates: start: 20220412
  2. DEXTROSE [Suspect]
     Active Substance: DEXTROSE
     Indication: Neoplasm malignant
     Dosage: UNK (250 IN 500 ML)
     Route: 042
     Dates: start: 20220412

REACTIONS (7)
  - Muscle rigidity [Unknown]
  - Cardiovascular disorder [Unknown]
  - Circulatory collapse [Unknown]
  - Syncope [Unknown]
  - Dyspnoea [Unknown]
  - Mucosal inflammation [Unknown]
  - Dysarthria [Unknown]

NARRATIVE: CASE EVENT DATE: 20220412
